FAERS Safety Report 18565246 (Version 1)
Quarter: 2020Q4

REPORT INFORMATION
  Report Type: Spontaneous
  Country: AU (occurrence: AU)
  Receive Date: 20201201
  Receipt Date: 20201201
  Transmission Date: 20210114
  Serious: Yes (Death, Hospitalization)
  Sender: FDA-Public Use
  Company Number: AU-BAYER-2020-251832

PATIENT
  Sex: Female

DRUGS (3)
  1. PRAZIQUANTEL. [Suspect]
     Active Substance: PRAZIQUANTEL
     Indication: ECHINOCOCCIASIS
  2. NITAZOXANIDE [Concomitant]
     Active Substance: NITAZOXANIDE
  3. ACETYLSALICYLIC ACID [Suspect]
     Active Substance: ASPIRIN
     Indication: THROMBOSIS PROPHYLAXIS

REACTIONS (3)
  - Product use in unapproved indication [None]
  - Off label use [None]
  - Cerebral haemorrhage [Fatal]
